FAERS Safety Report 12261723 (Version 1)
Quarter: 2016Q2

REPORT INFORMATION
  Report Type: Report from Study
  Country: US (occurrence: US)
  Receive Date: 20160413
  Receipt Date: 20160413
  Transmission Date: 20160815
  Serious: Yes (Hospitalization, Other)
  Sender: FDA-Public Use
  Company Number: US-AMGEN-USASL2016042699

PATIENT
  Age: 71 Year
  Sex: Female

DRUGS (2)
  1. ENBREL [Suspect]
     Active Substance: ETANERCEPT
     Indication: RHEUMATOID ARTHRITIS
     Dosage: 50 MG, QWK
     Route: 065
  2. ENBREL [Suspect]
     Active Substance: ETANERCEPT
     Dosage: 50 MG, QWK
     Route: 065
     Dates: start: 201603

REACTIONS (18)
  - Large intestine perforation [Unknown]
  - Endoscopy gastrointestinal [Unknown]
  - Colostomy [Unknown]
  - Foot deformity [Unknown]
  - Palpitations [Unknown]
  - Incisional drainage [Unknown]
  - Explorative laparotomy [Unknown]
  - Intestinal obstruction [Unknown]
  - Asthma [Unknown]
  - Debridement [Unknown]
  - Musculoskeletal disorder [Unknown]
  - Sepsis [Unknown]
  - Pain in extremity [Not Recovered/Not Resolved]
  - Grip strength decreased [Unknown]
  - Hernia repair [Unknown]
  - Blood magnesium abnormal [Unknown]
  - Peritonitis [Unknown]
  - Pain [Unknown]

NARRATIVE: CASE EVENT DATE: 201311
